FAERS Safety Report 5703825-5 (Version None)
Quarter: 2008Q2

REPORT INFORMATION
  Report Type: 
  Country: None (occurrence: None)
  Receive Date: 20080414
  Receipt Date: 20080401
  Transmission Date: 20081010
  Serious: Yes (Disabling, Other)
  Sender: FDA-Public Use
  Company Number: BR-BAYER-200812640LA

PATIENT
  Age: 44 Year
  Sex: Male

DRUGS (5)
  1. AVELOX [Suspect]
     Indication: PNEUMONIA
     Route: 042
     Dates: start: 20080314, end: 20080318
  2. AVELOX [Suspect]
     Route: 048
     Dates: start: 20080319, end: 20080320
  3. TAPAZOL [Concomitant]
     Indication: HYPERTHYROIDISM
     Route: 065
     Dates: start: 20030101, end: 20080327
  4. SELOZOK [Concomitant]
     Indication: ARRHYTHMIA
     Route: 065
     Dates: start: 20080101
  5. CETOPROFENO [Concomitant]
     Indication: DRUG USE FOR UNKNOWN INDICATION

REACTIONS (8)
  - APNOEA [None]
  - CONVULSION [None]
  - CYANOSIS [None]
  - HEADACHE [None]
  - HUMERUS FRACTURE [None]
  - JOINT DISLOCATION [None]
  - LOSS OF CONSCIOUSNESS [None]
  - MYOCLONUS [None]
